FAERS Safety Report 5735676-X (Version None)
Quarter: 2008Q2

REPORT INFORMATION
  Report Type: 
  Country: None (occurrence: None)
  Receive Date: 20080512
  Receipt Date: 20080501
  Transmission Date: 20081010
  Serious: Yes (Other)
  Sender: FDA-Public Use
  Company Number: US-PFIZER INC-2008039281

PATIENT
  Age: 55 Year
  Sex: Female

DRUGS (2)
  1. CHANTIX [Suspect]
     Indication: SMOKING CESSATION THERAPY
     Dates: start: 20080401, end: 20080401
  2. ALCOHOL [Suspect]

REACTIONS (6)
  - ALCOHOL ABUSE [None]
  - ALCOHOL POISONING [None]
  - DEPRESSION [None]
  - FALL [None]
  - LACERATION [None]
  - SUICIDAL IDEATION [None]
